FAERS Safety Report 5141178-4 (Version None)
Quarter: 2006Q4

REPORT INFORMATION
  Report Type: 
  Country: None (occurrence: None)
  Receive Date: 20061101
  Receipt Date: 20061025
  Transmission Date: 20070319
  Serious: Yes (Life-Threatening, Hospitalization)
  Sender: FDA-Public Use
  Company Number: ES-BAYER-200615021GDS

PATIENT
  Age: 61 Year
  Sex: Male
  Weight: 80 kg

DRUGS (5)
  1. ADIRO 300 [Suspect]
     Indication: DRUG USE FOR UNKNOWN INDICATION
     Route: 048
     Dates: start: 20060201, end: 20060201
  2. AGRASTAT [Suspect]
     Indication: ANGINA PECTORIS
     Route: 042
     Dates: start: 20060201, end: 20060202
  3. HEPARIN SODIUM 5 IU [Suspect]
     Indication: ANGINA PECTORIS
     Route: 042
     Dates: start: 20060201, end: 20060202
  4. PLAVIX [Suspect]
     Indication: DRUG USE FOR UNKNOWN INDICATION
     Dosage: UNIT DOSE: 75 MG
     Route: 048
     Dates: start: 20060201, end: 20060201
  5. COROPRES 25 MG [Concomitant]
     Indication: DRUG USE FOR UNKNOWN INDICATION
     Route: 048
     Dates: start: 20060201

REACTIONS (1)
  - THROMBOCYTOPENIA [None]
